FAERS Safety Report 4867923-0 (Version None)
Quarter: 2005Q4

REPORT INFORMATION
  Report Type: 
  Country: None (occurrence: None)
  Receive Date: 20051227
  Receipt Date: 20051213
  Transmission Date: 20060501
  Serious: Yes (Hospitalization)
  Sender: FDA-Public Use
  Company Number: DSA_27560_2005

PATIENT
  Age: 37 Year
  Sex: Female

DRUGS (11)
  1. TEMESTA [Suspect]
     Indication: BIPOLAR I DISORDER
     Dosage: 4 MG Q DAY PO
     Route: 048
     Dates: start: 20050629, end: 20050706
  2. TEMESTA [Suspect]
     Indication: MANIA
     Dosage: 4 MG Q DAY PO
     Route: 048
     Dates: start: 20050629, end: 20050706
  3. CLOPIXOL (DECANOATE) [Suspect]
     Indication: BIPOLAR I DISORDER
     Dosage: DF ONCE IM
     Route: 030
     Dates: start: 20050629, end: 20050629
  4. CLOPIXOL (DECANOATE) [Suspect]
     Indication: MANIA
     Dosage: DF ONCE IM
     Route: 030
     Dates: start: 20050629, end: 20050629
  5. DEPAKOTE [Suspect]
     Indication: BIPOLAR I DISORDER
     Dosage: 1 G Q DAY PO
     Route: 048
     Dates: start: 20050629, end: 20050706
  6. DEPAKOTE [Suspect]
     Indication: MANIA
     Dosage: 1 G Q DAY PO
     Route: 048
     Dates: start: 20050629, end: 20050706
  7. SPECIAFOLDINE [Suspect]
     Indication: ANAEMIA
     Dosage: 5 MG Q DAY PO
     Route: 048
     Dates: start: 20050706
  8. ZYPREXA [Suspect]
     Indication: BIPOLAR I DISORDER
     Dosage: 2 TAB Q DAY PO
     Route: 048
     Dates: start: 20050706
  9. ZYPREXA [Suspect]
     Indication: MANIA
     Dosage: 2 TAB Q DAY PO
     Route: 048
     Dates: start: 20050706
  10. ZYPREXA [Suspect]
     Indication: BIPOLAR I DISORDER
     Dosage: 10 MG ONCE IM
     Route: 030
     Dates: start: 20050629, end: 20050629
  11. ZYPREXA [Suspect]
     Indication: MANIA
     Dosage: 10 MG ONCE IM
     Route: 030
     Dates: start: 20050629, end: 20050629

REACTIONS (2)
  - ABORTION SPONTANEOUS [None]
  - DRUG EXPOSURE DURING PREGNANCY [None]
